FAERS Safety Report 16873095 (Version 1)
Quarter: 2019Q4

REPORT INFORMATION
  Report Type: Spontaneous
  Country: US (occurrence: US)
  Receive Date: 20191001
  Receipt Date: 20191001
  Transmission Date: 20200122
  Serious: Yes (Hospitalization)
  Sender: FDA-Public Use
  Company Number: US-VERTEX PHARMACEUTICALS-2019-009220

PATIENT
  Age: 36 Year
  Sex: Male

DRUGS (13)
  1. LANTUS [Concomitant]
     Active Substance: INSULIN GLARGINE
     Dosage: UNK
  2. BACTRIM [Concomitant]
     Active Substance: SULFAMETHOXAZOLE\TRIMETHOPRIM
     Dosage: UNK
  3. ORKAMBI [Suspect]
     Active Substance: IVACAFTOR\LUMACAFTOR
     Indication: CYSTIC FIBROSIS
     Dosage: 200/ 125 MG, BID
     Route: 048
  4. ZYRTEC [Concomitant]
     Active Substance: CETIRIZINE HYDROCHLORIDE
     Dosage: UNK
  5. PREDNISONE. [Concomitant]
     Active Substance: PREDNISONE
     Dosage: UNK
  6. ZITHROMAX [Concomitant]
     Active Substance: AZITHROMYCIN DIHYDRATE
     Dosage: UNK
  7. BETAMETHASONE DIPROPIONATE. [Concomitant]
     Active Substance: BETAMETHASONE DIPROPIONATE
     Dosage: UNK
  8. ACCUTANE [Concomitant]
     Active Substance: ISOTRETINOIN
     Dosage: UNK
  9. COMBIVENT [Concomitant]
     Active Substance: ALBUTEROL SULFATE\IPRATROPIUM BROMIDE
  10. CREON [Concomitant]
     Active Substance: PANCRELIPASE AMYLASE\PANCRELIPASE LIPASE\PANCRELIPASE PROTEASE
     Dosage: UNK
  11. TOBI [Concomitant]
     Active Substance: TOBRAMYCIN
     Dosage: UNK
  12. ADVAIR HFA [Concomitant]
     Active Substance: FLUTICASONE PROPIONATE\SALMETEROL XINAFOATE
     Dosage: UNK
  13. NOVOLOG [Concomitant]
     Active Substance: INSULIN ASPART
     Dosage: UNK

REACTIONS (1)
  - Hospitalisation [Unknown]

NARRATIVE: CASE EVENT DATE: 20190824
